FAERS Safety Report 9498090 (Version 3)
Quarter: 2014Q3

REPORT INFORMATION
  Report Type: Spontaneous
  Country: US (occurrence: US)
  Receive Date: 20130904
  Receipt Date: 20140715
  Transmission Date: 20150326
  Serious: Yes (Hospitalization, Other)
  Sender: FDA-Public Use
  Company Number: US-BAYER-2013-105690

PATIENT
  Age: 25 Year
  Sex: Female
  Weight: 90.7 kg

DRUGS (2)
  1. MOTRIN [Concomitant]
     Active Substance: IBUPROFEN
  2. MIRENA [Suspect]
     Active Substance: LEVONORGESTREL
     Indication: CONTRACEPTION
     Dosage: 20 MCG/24HR, CONT
     Route: 015
     Dates: start: 20100114, end: 20120208

REACTIONS (10)
  - Infection [None]
  - Injury [None]
  - Abdominal pain lower [None]
  - Medical device pain [None]
  - Device dislocation [None]
  - Nervousness [None]
  - Uterine perforation [None]
  - Genital haemorrhage [None]
  - Dyspareunia [None]
  - Device issue [None]

NARRATIVE: CASE EVENT DATE: 201001
